FAERS Safety Report 6297811-7 (Version None)
Quarter: 2009Q3

REPORT INFORMATION
  Report Type: 
  Country: None (occurrence: None)
  Receive Date: 20090804
  Receipt Date: 20090804
  Transmission Date: 20100115
  Serious: Yes (Other)
  Sender: FDA-Public Use
  Company Number: None

PATIENT
  Sex: Male
  Weight: 68.2 kg

DRUGS (1)
  1. NORVASC [Suspect]
     Indication: BLOOD PRESSURE
     Dosage: 10 MG, 1 A DAY, ORAL
     Route: 048

REACTIONS (1)
  - JOINT SWELLING [None]
